FAERS Safety Report 20127789 (Version 2)
Quarter: 2021Q4

REPORT INFORMATION
  Report Type: Report from Study
  Country: FR (occurrence: FR)
  Receive Date: 20211129
  Receipt Date: 20211214
  Transmission Date: 20220303
  Serious: Yes (Hospitalization)
  Sender: FDA-Public Use
  Company Number: FR-GILEAD-2021-0558024

PATIENT
  Sex: Male
  Weight: 88 kg

DRUGS (9)
  1. SACITUZUMAB GOVITECAN [Suspect]
     Active Substance: SACITUZUMAB GOVITECAN
     Indication: Transitional cell carcinoma metastatic
     Dosage: 7.5 MG/KG
     Route: 042
     Dates: start: 20211119
  2. SACITUZUMAB GOVITECAN [Suspect]
     Active Substance: SACITUZUMAB GOVITECAN
     Dosage: 7.5 MG/KG CYCLE 2 DAY 1
     Route: 042
     Dates: start: 20211210
  3. CISPLATIN [Suspect]
     Active Substance: CISPLATIN
     Indication: Transitional cell carcinoma metastatic
     Dosage: C1D1
     Route: 042
     Dates: start: 20211119
  4. CISPLATIN [Suspect]
     Active Substance: CISPLATIN
     Dosage: C2 D1
     Route: 042
     Dates: start: 20211210
  5. INNOHEP [Concomitant]
     Active Substance: TINZAPARIN SODIUM
     Indication: Deep vein thrombosis
     Dosage: UNK
     Dates: start: 20211118
  6. NICOTINELL [Concomitant]
     Active Substance: NICOTINE
     Indication: Ex-tobacco user
     Dosage: UNK
  7. PANTOPRAZOLE [Concomitant]
     Active Substance: PANTOPRAZOLE
     Indication: Prophylaxis
     Dosage: UNK
  8. CLOBAZAM [Concomitant]
     Active Substance: CLOBAZAM
     Indication: Anxiety
     Dosage: UNK
  9. AMLODIPINE BESYLATE [Concomitant]
     Active Substance: AMLODIPINE BESYLATE
     Dosage: UNK

REACTIONS (1)
  - Seizure [Unknown]

NARRATIVE: CASE EVENT DATE: 20211120
